FAERS Safety Report 7919293-9 (Version None)
Quarter: 2011Q4

REPORT INFORMATION
  Report Type: 
  Country: None (occurrence: None)
  Receive Date: 20111115
  Receipt Date: 20111115
  Transmission Date: 20120403
  Serious: Yes (Life-Threatening)
  Sender: FDA-Public Use
  Company Number: None

PATIENT
  Age: 76 Year
  Sex: Female
  Weight: 53.0709 kg

DRUGS (3)
  1. TRIAMCINOLONE ACETONIDE [Suspect]
     Indication: HYPERSENSITIVITY
     Dosage: 1 SPRAY ONCE DAILY
     Route: 045
     Dates: start: 20111007, end: 20111101
  2. TRIAMCINOLONE ACETONIDE [Suspect]
     Indication: HYPERSENSITIVITY
     Dosage: 1 SPRAY ONCE DAILY
     Route: 045
     Dates: start: 19910101, end: 20111007
  3. MOMETASONE FUROATE [Suspect]
     Indication: HYPERSENSITIVITY
     Dosage: APPLY CREAM WHEN NEEDED
     Route: 061
     Dates: start: 20111010, end: 20111011

REACTIONS (3)
  - PRODUCT QUALITY ISSUE [None]
  - PRODUCT SUBSTITUTION ISSUE [None]
  - DRUG INEFFECTIVE [None]
